FAERS Safety Report 6343753-8 (Version None)
Quarter: 2009Q3

REPORT INFORMATION
  Report Type: 
  Country: None (occurrence: None)
  Receive Date: 20090908
  Receipt Date: 20090901
  Transmission Date: 20100115
  Serious: Yes (Disabling)
  Sender: FDA-Public Use
  Company Number: B0569223A

PATIENT
  Age: 4 Year
  Sex: Female

DRUGS (2)
  1. FLUTIDE [Suspect]
     Indication: ASTHMA
     Dosage: 125MCG PER DAY
     Route: 055
     Dates: start: 20080101
  2. VENTOLIN [Suspect]
     Indication: DRUG USE FOR UNKNOWN INDICATION
     Route: 055

REACTIONS (1)
  - ENURESIS [None]
